FAERS Safety Report 6419571-9 (Version None)
Quarter: 2009Q4

REPORT INFORMATION
  Report Type: 
  Country: None (occurrence: None)
  Receive Date: 20091027
  Receipt Date: 20091021
  Transmission Date: 20100525
  Serious: Yes (Life-Threatening, Hospitalization)
  Sender: FDA-Public Use
  Company Number: 230012M09ESP

PATIENT
  Age: 53 Year
  Sex: Female

DRUGS (1)
  1. REBIF [Suspect]
     Indication: MULTIPLE SCLEROSIS
     Dosage: 44, SUBCUTANEOUS
     Route: 058
     Dates: start: 20090119, end: 20090404

REACTIONS (29)
  - ANURIA [None]
  - ASCITES [None]
  - ATELECTASIS [None]
  - CANDIDURIA [None]
  - CEREBRAL ISCHAEMIA [None]
  - COAGULOPATHY [None]
  - COMPUTERISED TOMOGRAM ABNORMAL [None]
  - DISSEMINATED INTRAVASCULAR COAGULATION [None]
  - EMBOLISM [None]
  - ENTEROBACTER INFECTION [None]
  - GRAND MAL CONVULSION [None]
  - HAEMODIALYSIS [None]
  - HAEMORRHAGE [None]
  - HALLUCINATION [None]
  - HYDRONEPHROSIS [None]
  - HYPOPHONESIS [None]
  - ISCHAEMIC HEPATITIS [None]
  - MUSCULOSKELETAL DISORDER [None]
  - NECROSIS ISCHAEMIC [None]
  - OXYGEN SATURATION DECREASED [None]
  - PARESIS [None]
  - PETECHIAE [None]
  - PLEURAL EFFUSION [None]
  - PURULENT DISCHARGE [None]
  - PYELONEPHRITIS ACUTE [None]
  - RENAL FAILURE ACUTE [None]
  - SEPTIC SHOCK [None]
  - THROMBOCYTOPENIA [None]
  - WHEEZING [None]
